FAERS Safety Report 9508907 (Version 1)
Quarter: 2013Q1

REPORT INFORMATION
  Report Type: Spontaneous
  Country: US (occurrence: None)
  Receive Date: 20130305
  Receipt Date: 20130305
  Transmission Date: 20140127
  Serious: Yes (Other)
  Sender: FDA-Public Use
  Company Number: 163-21880-12081965

PATIENT
  Age: 77 Year
  Sex: Male
  Weight: 85.28 kg

DRUGS (18)
  1. REVLIMID (LENALIDOMIDE) (CAPSULES) [Suspect]
     Indication: PLASMA CELL MYELOMA
     Dosage: 10 MG, 28 IN 28 D, PO
     Route: 048
     Dates: start: 20120608
  2. ASA (ACETYLSALICYLIC ACID) (UNKNOWN) [Concomitant]
  3. ALPRAZOLAM (ALPRAZOLAM) (UNKNOWN) (ALPRAZOLAM) [Concomitant]
  4. BACTRIM (BACTRIM) (UNKNOWN) [Concomitant]
  5. CALCIUM (CALCIUM) (UNKNOWN) [Concomitant]
  6. COLACE (DOCUSATE SODIUM) (UNKNOWN) [Concomitant]
  7. FLOMAX (TAMSULOSIN) (UNKNOWN) [Concomitant]
  8. LANTUS (INSULIN GLARGINE) (UNKNOWN) [Concomitant]
  9. LASIX (FUROSEMIDE) (UNKNOWN) [Concomitant]
  10. LISINOPRIL (LISINOPRIL) (UNKNOWN) [Concomitant]
  11. LORCET (VICODIN) (UNKNOWN) [Concomitant]
  12. METOPROLOL (METORPOLOL) (UNKNOWN) [Concomitant]
  13. NOVOLOG (INSULIN ASPART) (UNKNOWN) [Concomitant]
  14. PRAVASTATIN (PRAVASTATIN) (UNKNOWN)? [Concomitant]
  15. ULTRAM (TRAMADOL HYDROCHLORIDE) (UNKNOWN) [Concomitant]
  16. ZESTRIL (LISINOPRIL) (UNKNOWN) [Concomitant]
  17. ZOLOFT (SERTRALINE HYDROCHLORIDE) (UNKNOWN) [Concomitant]
  18. ANTIBIOTIC (ANTIBIOTICS) (UNKNOWN) [Concomitant]

REACTIONS (2)
  - Prostatic specific antigen increased [None]
  - Urinary retention [None]
